FAERS Safety Report 24329149 (Version 2)
Quarter: 2024Q3

REPORT INFORMATION
  Report Type: Spontaneous
  Country: US (occurrence: US)
  Receive Date: 20240917
  Receipt Date: 20240917
  Transmission Date: 20241017
  Serious: Yes (Other)
  Sender: AMGEN
  Company Number: US-AMGEN-USASP2024182099

PATIENT

DRUGS (2)
  1. ADALIMUMAB [Suspect]
     Active Substance: ADALIMUMAB
     Indication: Hidradenitis
     Dosage: UNK
     Route: 065
  2. INFLIXIMAB [Suspect]
     Active Substance: INFLIXIMAB
     Indication: Hidradenitis
     Dosage: UNK
     Route: 065

REACTIONS (10)
  - Neoplasm malignant [Unknown]
  - Drug ineffective [Unknown]
  - Latent tuberculosis [Unknown]
  - Fear of injection [Unknown]
  - Off label use [Unknown]
  - Drug specific antibody present [Unknown]
  - COVID-19 [Unknown]
  - Infection [Unknown]
  - Adverse reaction [Unknown]
  - Surgery [Unknown]
